FAERS Safety Report 4869886-0 (Version None)
Quarter: 2005Q4

REPORT INFORMATION
  Report Type: 
  Country: None (occurrence: None)
  Receive Date: 20051230
  Receipt Date: 20050902
  Transmission Date: 20060501
  Serious: Yes (Death)
  Sender: FDA-Public Use
  Company Number: US-MERCK-0509USA00584

PATIENT
  Age: 45 Year
  Sex: Male
  Weight: 109 kg

DRUGS (8)
  1. VIOXX [Suspect]
     Indication: ARTHRITIS
     Route: 048
     Dates: start: 20000908, end: 20001023
  2. VIOXX [Suspect]
     Route: 048
     Dates: start: 20001024, end: 20001117
  3. VIOXX [Suspect]
     Indication: GOUT
     Route: 048
     Dates: start: 20000908, end: 20001023
  4. VIOXX [Suspect]
     Route: 048
     Dates: start: 20001024, end: 20001117
  5. HYDROCHLOROTHIAZIDE [Concomitant]
     Indication: HYPERTENSION
     Route: 048
     Dates: start: 20000525, end: 20001001
  6. ACETAMINOPHEN AND HYDROCODONE BITARTRATE [Concomitant]
     Route: 048
     Dates: start: 20000717, end: 20001001
  7. SULFAMETHOXAZOLE AND TRIMETHOPRIM [Concomitant]
     Route: 065
  8. ATACAND [Concomitant]
     Indication: HYPERTENSION
     Route: 048
     Dates: start: 19991026, end: 20000901

REACTIONS (8)
  - ARTERIOSCLEROSIS CORONARY ARTERY [None]
  - CARDIOMEGALY [None]
  - DIARRHOEA [None]
  - INFECTION [None]
  - MYOCARDIAL INFARCTION [None]
  - PULMONARY CONGESTION [None]
  - PULMONARY OEDEMA [None]
  - SUDDEN CARDIAC DEATH [None]
